FAERS Safety Report 5148405-8 (Version None)
Quarter: 2006Q4

REPORT INFORMATION
  Report Type: 
  Country: None (occurrence: None)
  Receive Date: 20061107
  Receipt Date: 20061030
  Transmission Date: 20070319
  Serious: Yes (Life-Threatening, Hospitalization, Disabling, Other)
  Sender: FDA-Public Use
  Company Number: GXKR2006GB06807

PATIENT
  Age: 42 Year
  Sex: Female
  Weight: 60 kg

DRUGS (2)
  1. TRIMETHOPRIM [Suspect]
     Indication: URINARY TRACT INFECTION
     Dosage: 200 MG, BID, ORAL
     Route: 048
     Dates: start: 20060807, end: 20060807
  2. OXCARBAZEPINE [Concomitant]

REACTIONS (5)
  - ANAPHYLACTIC REACTION [None]
  - CARDIAC ARREST [None]
  - CONVULSION [None]
  - HYPOXIC ENCEPHALOPATHY [None]
  - MUSCLE TWITCHING [None]
